FAERS Safety Report 16225101 (Version 1)
Quarter: 2019Q2

REPORT INFORMATION
  Report Type: Spontaneous
  Country: US (occurrence: US)
  Receive Date: 20190422
  Receipt Date: 20190422
  Transmission Date: 20190711
  Serious: Yes (Other)
  Sender: FDA-Public Use
  Company Number: US-JNJFOC-20190422595

PATIENT
  Sex: Male

DRUGS (2)
  1. EVARREST [Suspect]
     Active Substance: FIBRINOGEN HUMAN\THROMBIN HUMAN
     Indication: DRUG THERAPY
     Route: 061
  2. EVARREST [Suspect]
     Active Substance: FIBRINOGEN HUMAN\THROMBIN HUMAN
     Indication: PROPHYLAXIS
     Route: 061

REACTIONS (4)
  - Product use in unapproved indication [Unknown]
  - Penis disorder [Unknown]
  - Penile necrosis [Unknown]
  - Off label use [Unknown]
